FAERS Safety Report 5887184-3 (Version None)
Quarter: 2008Q3

REPORT INFORMATION
  Report Type: 
  Country: None (occurrence: None)
  Receive Date: 20080915
  Receipt Date: 20080901
  Transmission Date: 20090109
  Serious: Yes (Death, Hospitalization, Other)
  Sender: FDA-Public Use
  Company Number: CERZ-1000356

PATIENT
  Age: 28 Year
  Sex: Female
  Weight: 58 kg

DRUGS (2)
  1. CEREZYME [Suspect]
     Indication: GAUCHER'S DISEASE
     Dosage: 60 U/KG, ONCE, INTRAVENOUS; 60 U;KG, ONCE, INTRAVENOUS
     Route: 042
     Dates: start: 20080724, end: 20080724
  2. CEREZYME [Suspect]
     Indication: GAUCHER'S DISEASE
     Dosage: 60 U/KG, ONCE, INTRAVENOUS; 60 U;KG, ONCE, INTRAVENOUS
     Route: 042
     Dates: start: 20080807, end: 20080807

REACTIONS (7)
  - CATHETER SITE HAEMORRHAGE [None]
  - CHOLECYSTITIS [None]
  - FEBRILE NEUTROPENIA [None]
  - HYPOVOLAEMIC SHOCK [None]
  - IATROGENIC INJURY [None]
  - PROCEDURAL COMPLICATION [None]
  - SPLENIC INJURY [None]
